FAERS Safety Report 4305909-5 (Version None)
Quarter: 2004Q1

REPORT INFORMATION
  Report Type: 
  Country: None (occurrence: None)
  Receive Date: 20040226
  Receipt Date: 20030708
  Transmission Date: 20041129
  Serious: Yes (Death, Life-Threatening, Hospitalization)
  Sender: FDA-Public Use
  Company Number: WAES 0307DEU00059

PATIENT
  Age: 83 Year
  Sex: Female

DRUGS (27)
  1. AMLODIPINE BESYLATE [Concomitant]
     Indication: HYPERTENSION
     Route: 048
     Dates: start: 20030601
  2. ASPIRIN [Suspect]
     Route: 048
     Dates: start: 20030612
  3. DEXAMETHASONE [Concomitant]
     Route: 048
     Dates: end: 20030610
  4. DIPYRONE [Suspect]
     Indication: PAIN
     Route: 048
     Dates: start: 20030613, end: 20030618
  5. DIPYRONE [Suspect]
     Route: 048
     Dates: start: 20030619, end: 20030620
  6. DIPYRONE [Suspect]
     Route: 048
     Dates: start: 20030621, end: 20030622
  7. DIPYRONE [Suspect]
     Route: 048
     Dates: start: 20030623, end: 20030701
  8. FUROSEMIDE SODIUM [Suspect]
     Indication: HYPERTENSION
     Route: 048
     Dates: start: 20030612
  9. FUROSEMIDE SODIUM [Suspect]
     Route: 048
     Dates: end: 20030611
  10. ISOSORBIDE MONONITRATE [Concomitant]
     Indication: HYPERTENSION
     Route: 048
     Dates: end: 20030611
  11. LISINOPRIL [Concomitant]
     Indication: HYPERTENSION
     Route: 048
     Dates: start: 20030601
  12. MOXONIDINE [Suspect]
     Indication: HYPERTENSION
     Route: 048
     Dates: start: 20030612
  13. MOXONIDINE [Concomitant]
     Route: 048
     Dates: end: 20030611
  14. NADROPARIN CALCIUM [Concomitant]
     Indication: THROMBOSIS PROPHYLAXIS
     Route: 058
     Dates: end: 20030611
  15. PANTOPRAZOLE SODIUM [Concomitant]
     Indication: PROPHYLAXIS AGAINST GASTROINTESTINAL ULCER
     Route: 048
     Dates: start: 20030601, end: 20030705
  16. PANTOPRAZOLE SODIUM [Concomitant]
     Route: 048
     Dates: start: 20030707
  17. POLYETHYLENE GLYCOL 3350 AND POTASSIUM CHLORIDE AND SODIUM BICARBONATE [Concomitant]
     Indication: CONSTIPATION
     Route: 048
     Dates: end: 20030611
  18. POTASSIUM BICARBONATE AND POTASSIUM CITRATE [Concomitant]
     Route: 048
     Dates: start: 20030614, end: 20030619
  19. POTASSIUM BICARBONATE AND POTASSIUM CITRATE [Concomitant]
     Route: 048
     Dates: start: 20030623, end: 20030623
  20. VIOXX [Suspect]
     Indication: RADICULOPATHY
     Route: 048
     Dates: start: 20030623, end: 20030701
  21. VIOXX [Suspect]
     Route: 048
     Dates: start: 20030101, end: 20030611
  22. VIOXX [Suspect]
     Route: 048
     Dates: start: 20030613, end: 20030614
  23. SUCRALFATE [Concomitant]
     Indication: REFLUX OESOPHAGITIS
     Route: 048
     Dates: end: 20030611
  24. TOLPERISONE HYDROCHLORIDE [Concomitant]
     Indication: MUSCLE SPASMS
     Route: 048
     Dates: end: 20030611
  25. TOLPERISONE HYDROCHLORIDE [Concomitant]
     Route: 048
     Dates: start: 20030613, end: 20030614
  26. TRAMADOL HYDROCHLORIDE [Suspect]
     Indication: PAIN
     Route: 048
     Dates: start: 20030613, end: 20030623
  27. TRAMADOL HYDROCHLORIDE [Suspect]
     Route: 048
     Dates: start: 20030702, end: 20030705

REACTIONS (4)
  - CARDIAC FAILURE [None]
  - HAEMATEMESIS [None]
  - STEVENS-JOHNSON SYNDROME [None]
  - TOXIC EPIDERMAL NECROLYSIS [None]
